FAERS Safety Report 7366531-X (Version None)
Quarter: 2011Q1

REPORT INFORMATION
  Report Type: 
  Country: None (occurrence: None)
  Receive Date: 20110322
  Receipt Date: 20110315
  Transmission Date: 20110831
  Serious: Yes (Other)
  Sender: FDA-Public Use
  Company Number: US-US-EMD SERONO, INC.-7047997

PATIENT
  Sex: Female

DRUGS (3)
  1. ZANAFLEX [Concomitant]
     Indication: MUSCLE SPASTICITY
  2. REBIF [Suspect]
     Indication: MULTIPLE SCLEROSIS
     Route: 058
     Dates: start: 20060317
  3. BACLOFEN [Concomitant]
     Indication: MUSCLE SPASTICITY

REACTIONS (3)
  - THROMBOSIS [None]
  - CHOKING [None]
  - MULTIPLE SCLEROSIS [None]
